FAERS Safety Report 13263378 (Version 1)
Quarter: 2017Q1

REPORT INFORMATION
  Report Type: Spontaneous
  Country: US (occurrence: US)
  Receive Date: 20170223
  Receipt Date: 20170223
  Transmission Date: 20170428
  Serious: No
  Sender: FDA-Public Use
  Company Number: US-BAYER-2017-035839

PATIENT
  Age: 9 Year
  Sex: Female
  Weight: 27.21 kg

DRUGS (1)
  1. MIRALAX [Suspect]
     Active Substance: POLYETHYLENE GLYCOL 3350
     Indication: ABDOMINAL DISCOMFORT
     Dosage: 1/2 DOSE EVERY OTHER DAY
     Route: 048
     Dates: start: 2013

REACTIONS (5)
  - Anger [Not Recovered/Not Resolved]
  - Product use issue [None]
  - Product use issue [Unknown]
  - Anxiety [Not Recovered/Not Resolved]
  - Drug administered to patient of inappropriate age [Unknown]

NARRATIVE: CASE EVENT DATE: 2013
